FAERS Safety Report 22877410 (Version 2)
Quarter: 2023Q4

REPORT INFORMATION
  Report Type: Spontaneous
  Country: FR (occurrence: FR)
  Receive Date: 20230829
  Receipt Date: 20231113
  Transmission Date: 20240110
  Serious: Yes (Hospitalization)
  Sender: FDA-Public Use
  Company Number: None

PATIENT
  Age: 34 Year
  Sex: Male

DRUGS (2)
  1. OCREVUS [Suspect]
     Active Substance: OCRELIZUMAB
     Indication: Relapsing-remitting multiple sclerosis
     Route: 042
     Dates: start: 20221010, end: 20230502
  2. BACTRIM [Suspect]
     Active Substance: SULFAMETHOXAZOLE\TRIMETHOPRIM
     Indication: Erysipelas
     Route: 048
     Dates: start: 20230707, end: 20230714

REACTIONS (3)
  - Neutropenia [Recovering/Resolving]
  - Infection [Recovering/Resolving]
  - Erysipelas [Recovering/Resolving]

NARRATIVE: CASE EVENT DATE: 20230501
